FAERS Safety Report 17605392 (Version 1)
Quarter: 2020Q1

REPORT INFORMATION
  Report Type: Spontaneous
  Country: US (occurrence: US)
  Receive Date: 20200331
  Receipt Date: 20200331
  Transmission Date: 20200409
  Serious: Yes (Other)
  Sender: FDA-Public Use
  Company Number: None

PATIENT
  Age: 62 Year
  Sex: Female

DRUGS (2)
  1. LETAIRIS [Suspect]
     Active Substance: AMBRISENTAN
     Indication: PULMONARY ARTERIAL HYPERTENSION
     Route: 048
     Dates: start: 20180315
  2. AMOXICILLIN 375MG [Suspect]
     Active Substance: AMOXICILLIN
     Dates: start: 20200315, end: 20200322

REACTIONS (1)
  - Pruritus [None]

NARRATIVE: CASE EVENT DATE: 20200330
